FAERS Safety Report 6114824-6 (Version None)
Quarter: 2009Q1

REPORT INFORMATION
  Report Type: 
  Country: None (occurrence: None)
  Receive Date: 20090313
  Receipt Date: 20090304
  Transmission Date: 20090719
  Serious: Yes (Hospitalization)
  Sender: FDA-Public Use
  Company Number: JP-SANOFI-SYNTHELABO-A01200901262

PATIENT
  Sex: Male
  Weight: 53 kg

DRUGS (12)
  1. AVASTIN [Suspect]
     Route: 041
     Dates: start: 20090120, end: 20090120
  2. ELPLAT [Suspect]
     Indication: RECTAL CANCER
     Route: 041
     Dates: start: 20090120, end: 20090120
  3. IRINOTECAN HYDROCHLORIDE [Suspect]
     Route: 041
     Dates: start: 20081117, end: 20081117
  4. FLUOROURACIL [Suspect]
     Dosage: 500MG/BODY (335.6MG/M2) IN BOLUS THEN 2000MG/BODY/D1-2 (1342.3MG/M2/D1-2) AS CONTINUOUS INFUSION
     Route: 042
     Dates: start: 20090120, end: 20090122
  5. LEVOFOLINATE FOR IV INFUSION [Suspect]
     Route: 041
     Dates: start: 20090120, end: 20090120
  6. LOXONIN [Concomitant]
     Dosage: UNK
     Dates: start: 20070809
  7. HYPEN [Concomitant]
     Dosage: UNK
     Dates: start: 20070808
  8. ALESION [Concomitant]
     Dosage: UNK
     Dates: start: 20070808
  9. MIYA BM [Concomitant]
     Dosage: UNK
     Dates: start: 20070717
  10. MARZULENE-S [Concomitant]
     Dosage: UNK
     Dates: start: 20070717
  11. DECADRON [Concomitant]
     Indication: PREMEDICATION
     Route: 042
     Dates: start: 20081208, end: 20090120
  12. GRANISETRON [Concomitant]
     Indication: PREMEDICATION
     Route: 042
     Dates: start: 20081208, end: 20090120

REACTIONS (2)
  - PNEUMONIA [None]
  - PNEUMOTHORAX [None]
